FAERS Safety Report 4506448-9 (Version None)
Quarter: 2004Q4

REPORT INFORMATION
  Report Type: 
  Country: None (occurrence: None)
  Receive Date: 20041122
  Receipt Date: 20041110
  Transmission Date: 20050328
  Serious: Yes (Death)
  Sender: FDA-Public Use
  Company Number: US-JNJFOC-20041104123

PATIENT
  Sex: Male

DRUGS (1)
  1. REMICADE [Suspect]
     Indication: UVEITIS
     Route: 042

REACTIONS (4)
  - DISEASE PROGRESSION [None]
  - GASTRIC CANCER STAGE IV WITH METASTASES [None]
  - IMMUNOSUPPRESSION [None]
  - MALIGNANT ASCITES [None]
